FAERS Safety Report 11112049 (Version 1)
Quarter: 2015Q2

REPORT INFORMATION
  Report Type: Spontaneous
  Country: US (occurrence: None)
  Receive Date: 20150513
  Receipt Date: 20150513
  Transmission Date: 20150821
  Serious: Yes (Other)
  Sender: FDA-Public Use
  Company Number: None

PATIENT
  Age: 49 Year
  Sex: Female

DRUGS (2)
  1. ATENOLOL 25MG [Concomitant]
     Active Substance: ATENOLOL
  2. LOSARTAN [Suspect]
     Active Substance: LOSARTAN
     Indication: BLOOD PRESSURE INCREASED
     Route: 048

REACTIONS (6)
  - Dyspnoea [None]
  - Anxiety [None]
  - Asthenia [None]
  - Blood pressure inadequately controlled [None]
  - Feeling abnormal [None]
  - Product formulation issue [None]

NARRATIVE: CASE EVENT DATE: 20150206
